FAERS Safety Report 23471234 (Version 1)
Quarter: 2024Q1

REPORT INFORMATION
  Report Type: Spontaneous
  Country: US (occurrence: US)
  Receive Date: 20240202
  Receipt Date: 20240202
  Transmission Date: 20240410
  Serious: No
  Sender: FDA-Public Use
  Company Number: US-MYLANLABS-2024M1007722

PATIENT
  Sex: Female
  Weight: 70.31 kg

DRUGS (1)
  1. TYRVAYA [Suspect]
     Active Substance: VARENICLINE TARTRATE
     Indication: Dry eye
     Dosage: UNK UNK, BID
     Route: 045

REACTIONS (2)
  - Cough [Recovered/Resolved]
  - Sneezing [Recovered/Resolved]
